FAERS Safety Report 5956177-X (Version None)
Quarter: 2008Q4

REPORT INFORMATION
  Report Type: 
  Country: None (occurrence: None)
  Receive Date: 20081113
  Receipt Date: 20081030
  Transmission Date: 20090506
  Serious: Yes (Hospitalization)
  Sender: FDA-Public Use
  Company Number: 2008002658

PATIENT
  Age: 62 Year
  Sex: Male
  Weight: 66.7 kg

DRUGS (13)
  1. ERLOTINIB (ERLOTINIB) (TABLET) (ERLOTINIB) [Suspect]
     Indication: NON-SMALL CELL LUNG CANCER
     Dosage: (150 MG), ORAL
     Route: 048
     Dates: start: 20080813
  2. SUNITINIB/ PLACEBO [Suspect]
     Indication: NON-SMALL CELL LUNG CANCER
     Dosage: (37.5 MG, QD), ORAL
     Route: 048
     Dates: start: 20080813
  3. VALIUM [Concomitant]
  4. FOLIC ACID [Concomitant]
  5. HYDROXYCHLOROQUINE SULFATE [Concomitant]
  6. PERCOCET [Concomitant]
  7. PROCHLORPERAZINE MALEATE (PROCHLORPERAZINE MALEATE) [Concomitant]
  8. PREDNISONE [Concomitant]
  9. BENAZEPRIL (BENAZEPRIL) [Concomitant]
  10. ALLOPURINOL [Concomitant]
  11. METOPROLOL SUCCINATE [Concomitant]
  12. SILDENAFIL CITRATE [Concomitant]
  13. HYDROCHLOROTHIAZIDE [Concomitant]

REACTIONS (12)
  - BLOOD ALKALINE PHOSPHATASE INCREASED [None]
  - BLOOD CREATININE INCREASED [None]
  - BLOOD LACTATE DEHYDROGENASE INCREASED [None]
  - BLOOD SODIUM DECREASED [None]
  - BLOOD UREA INCREASED [None]
  - DEHYDRATION [None]
  - DIARRHOEA [None]
  - FATIGUE [None]
  - HYPERURICAEMIA [None]
  - NAUSEA [None]
  - VOMITING [None]
  - WEIGHT DECREASED [None]
